FAERS Safety Report 7672173-9 (Version None)
Quarter: 2011Q3

REPORT INFORMATION
  Report Type: 
  Country: None (occurrence: None)
  Receive Date: 20110809
  Receipt Date: 20110804
  Transmission Date: 20111222
  Serious: Yes (Death)
  Sender: FDA-Public Use
  Company Number: PHEH2011US00775

PATIENT
  Sex: Female

DRUGS (4)
  1. CALCIUM WITH VITAMIN D [Concomitant]
  2. TASIGNA [Suspect]
     Dosage: 400 MG, BID
     Route: 048
  3. ZYRTEC [Concomitant]
  4. MULTI-VITAMINS [Concomitant]

REACTIONS (1)
  - DEATH [None]
